FAERS Safety Report 13275729 (Version 1)
Quarter: 2017Q1

REPORT INFORMATION
  Report Type: Spontaneous
  Country: US (occurrence: US)
  Receive Date: 20170228
  Receipt Date: 20170228
  Transmission Date: 20170428
  Serious: No
  Sender: FDA-Public Use
  Company Number: US-JNJFOC-20170226400

PATIENT
  Age: 44 Year
  Sex: Male

DRUGS (3)
  1. INVOKAMET [Suspect]
     Active Substance: CANAGLIFLOZIN\METFORMIN HYDROCHLORIDE
     Indication: PRODUCT USED FOR UNKNOWN INDICATION
     Dosage: DOSE 50/1000 (UNITS UNSPECIFIED)
     Route: 065
     Dates: start: 201601
  2. ATORVASTATIN [Concomitant]
     Active Substance: ATORVASTATIN
     Route: 065
  3. BYDUREON [Concomitant]
     Active Substance: EXENATIDE
     Route: 065

REACTIONS (2)
  - Tooth disorder [Unknown]
  - Onychoclasis [Unknown]
